FAERS Safety Report 15825676 (Version 2)
Quarter: 2019Q1

REPORT INFORMATION
  Report Type: Report from Study
  Country: CA (occurrence: CA)
  Receive Date: 20190115
  Receipt Date: 20190130
  Transmission Date: 20190417
  Serious: Yes (Disabling)
  Sender: FDA-Public Use
  Company Number: CA-SA-2018SA198724

PATIENT
  Age: 40 Year
  Sex: Female

DRUGS (9)
  1. METHYLPREDNISOLONE. [Concomitant]
     Active Substance: METHYLPREDNISOLONE
     Indication: PREMEDICATION
     Dosage: 1 G, UNK
     Route: 042
     Dates: start: 20180716, end: 20180718
  2. BENADRYL [Concomitant]
     Active Substance: DIPHENHYDRAMINE HYDROCHLORIDE
     Indication: PREMEDICATION
     Dosage: 50 MG, PRN
     Route: 065
     Dates: start: 20180716
  3. DETROL [Concomitant]
     Active Substance: TOLTERODINE TARTRATE
     Dosage: UNK UNK, UNK
     Route: 048
  4. CIMETIDINE [Concomitant]
     Active Substance: CIMETIDINE
     Indication: PREMEDICATION
     Dosage: 200 MG, UNK
     Route: 048
     Dates: start: 20180716, end: 20180718
  5. ALEMTUZUMAB [Suspect]
     Active Substance: ALEMTUZUMAB
     Indication: RELAPSING-REMITTING MULTIPLE SCLEROSIS
     Dosage: 12 MG, QD
     Route: 041
     Dates: start: 20180716, end: 20180718
  6. GRAVOL [Concomitant]
     Active Substance: DIMENHYDRINATE
     Indication: PREMEDICATION
     Dosage: 50 MG, UNK
     Route: 048
     Dates: start: 20180716, end: 20180718
  7. ACYCLOVIR [ACICLOVIR] [Concomitant]
     Active Substance: ACYCLOVIR
     Indication: PREMEDICATION
     Dosage: 200 MG, BID
     Route: 048
     Dates: start: 20180716
  8. TYLENOL [Concomitant]
     Active Substance: ACETAMINOPHEN
     Indication: PREMEDICATION
     Dosage: 975 MG, PRN
     Route: 048
     Dates: start: 20180716
  9. CELEXA [CELECOXIB] [Concomitant]
     Active Substance: CELECOXIB
     Dosage: UNK UNK, UNK
     Route: 048

REACTIONS (28)
  - Memory impairment [Not Recovered/Not Resolved]
  - Epistaxis [Recovered/Resolved]
  - Nasopharyngitis [Recovered/Resolved]
  - Movement disorder [Unknown]
  - Mean cell haemoglobin increased [Recovered/Resolved]
  - White blood cells urine positive [Not Recovered/Not Resolved]
  - Lymphocyte count decreased [Recovered/Resolved]
  - Hypertension [Recovered/Resolved]
  - Laboratory test abnormal [Not Recovered/Not Resolved]
  - Urticaria [Recovered/Resolved]
  - Pyrexia [Recovered/Resolved]
  - Cough [Not Recovered/Not Resolved]
  - Asthenia [Recovering/Resolving]
  - Culture urine positive [Not Recovered/Not Resolved]
  - Mean cell haemoglobin concentration increased [Recovered/Resolved]
  - Mean cell volume increased [Not Recovered/Not Resolved]
  - Haemoglobin increased [Recovered/Resolved]
  - Muscular weakness [Recovering/Resolving]
  - Neutrophil count increased [Recovered/Resolved]
  - Aura [Recovering/Resolving]
  - Balance disorder [Recovering/Resolving]
  - Vision blurred [Recovering/Resolving]
  - Fatigue [Not Recovered/Not Resolved]
  - Dysstasia [Unknown]
  - Urine abnormality [Not Recovered/Not Resolved]
  - Red cell distribution width decreased [Recovered/Resolved]
  - Respiratory tract infection viral [Unknown]
  - Nasopharyngitis [Not Recovered/Not Resolved]

NARRATIVE: CASE EVENT DATE: 20180716
